FAERS Safety Report 6210588-6 (Version None)
Quarter: 2009Q2

REPORT INFORMATION
  Report Type: 
  Country: None (occurrence: None)
  Receive Date: 20090601
  Receipt Date: 20090525
  Transmission Date: 20091009
  Serious: Yes (Hospitalization, Other)
  Sender: FDA-Public Use
  Company Number: B0569805A

PATIENT
  Age: 80 Year
  Sex: Male

DRUGS (1)
  1. ARIXTRA [Suspect]
     Indication: HIP ARTHROPLASTY
     Dosage: 2.5MG PER DAY
     Route: 058
     Dates: start: 20090101, end: 20090101

REACTIONS (7)
  - ANAEMIA [None]
  - ARRHYTHMIA [None]
  - BLOOD PRESSURE DECREASED [None]
  - CARDIAC FUNCTION TEST ABNORMAL [None]
  - CHEST PAIN [None]
  - HAEMATEMESIS [None]
  - PULMONARY EMBOLISM [None]
